FAERS Safety Report 10489383 (Version 4)
Quarter: 2019Q1

REPORT INFORMATION
  Report Type: Spontaneous
  Country: ES (occurrence: ES)
  Receive Date: 20141002
  Receipt Date: 20190131
  Transmission Date: 20190417
  Serious: Yes (Hospitalization, Other)
  Sender: FDA-Public Use
  Company Number: ES-ALEXION PHARMACEUTICALS INC-A201403716

PATIENT
  Age: 46 Year
  Sex: Female

DRUGS (5)
  1. SOLIRIS [Suspect]
     Active Substance: ECULIZUMAB
     Indication: PAROXYSMAL NOCTURNAL HAEMOGLOBINURIA
     Dosage: 600 MG, QW
     Route: 042
     Dates: start: 20091214, end: 20100104
  2. SOLIRIS [Suspect]
     Active Substance: ECULIZUMAB
     Dosage: 900 MG, Q2W
     Route: 065
  3. EXJADE [Suspect]
     Active Substance: DEFERASIROX
     Indication: PRODUCT USED FOR UNKNOWN INDICATION
     Dosage: 900 MG, Q2W
     Route: 048
  4. SOLIRIS [Suspect]
     Active Substance: ECULIZUMAB
     Dosage: 900 MG, Q2W
     Route: 042
     Dates: start: 20100111
  5. CYCLOSPORINE. [Concomitant]
     Active Substance: CYCLOSPORINE
     Indication: PAROXYSMAL NOCTURNAL HAEMOGLOBINURIA
     Dosage: 3 MG/KG, QD
     Route: 065

REACTIONS (3)
  - Ecthyma [Recovered/Resolved]
  - Bone marrow failure [Unknown]
  - Pseudomonas infection [Unknown]

NARRATIVE: CASE EVENT DATE: 201409
